FAERS Safety Report 9416132 (Version 1)
Quarter: 2013Q3

REPORT INFORMATION
  Report Type: Spontaneous
  Country: None (occurrence: None)
  Receive Date: 20130717
  Receipt Date: 20130717
  Transmission Date: 20140515
  Serious: Yes (Other)
  Sender: FDA-Public Use
  Company Number: SYM-2013-05983

PATIENT
  Age: 59 Year
  Sex: Female

DRUGS (3)
  1. FLUOROURACIL [Suspect]
     Indication: ANAL SQUAMOUS CELL CARCINOMA
     Dosage: 750 MG/M2
     Route: 042
  2. MITOMYCIN [Suspect]
     Indication: ANAL SQUAMOUS CELL CARCINOMA
     Dosage: 10 MG/M2 EVERY CYCLE, INTRAVENOUS
     Route: 042
  3. UNSPECIFIED INGREDIENTS [Suspect]
     Indication: ANAL SQUAMOUS CELL CARCINOMA

REACTIONS (2)
  - White blood cell count decreased [None]
  - Decreased appetite [None]
